FAERS Safety Report 9960447 (Version 1)
Quarter: 2014Q1

REPORT INFORMATION
  Report Type: Report from Study
  Country: US (occurrence: US)
  Receive Date: 20140305
  Receipt Date: 20140305
  Transmission Date: 20141002
  Serious: No
  Sender: FDA-Public Use
  Company Number: US-ABBVIE-13P-163-1110401-00

PATIENT
  Age: 59 Year
  Sex: Male

DRUGS (4)
  1. HUMIRA [Suspect]
     Indication: PSORIASIS
     Dosage: LOADING DOSE
     Dates: start: 20130604, end: 20130604
  2. HUMIRA [Suspect]
     Dates: start: 20130611
  3. TYLENOL #3 [Concomitant]
     Indication: ARTHRALGIA
  4. CLOBETASOL [Concomitant]
     Indication: PSORIASIS
     Route: 061

REACTIONS (4)
  - Chromaturia [Not Recovered/Not Resolved]
  - Nocturia [Not Recovered/Not Resolved]
  - Abdominal pain [Not Recovered/Not Resolved]
  - Pelvic pain [Not Recovered/Not Resolved]
